FAERS Safety Report 7741590-0 (Version None)
Quarter: 2011Q3

REPORT INFORMATION
  Report Type: 
  Country: None (occurrence: None)
  Receive Date: 20110909
  Receipt Date: 20110905
  Transmission Date: 20111222
  Serious: Yes (Death, Hospitalization)
  Sender: FDA-Public Use
  Company Number: JP-ASTRAZENECA-2011SE49937

PATIENT
  Age: 77 Year
  Sex: Female
  Weight: 150 kg

DRUGS (9)
  1. IRESSA [Suspect]
     Indication: NON-SMALL CELL LUNG CANCER
     Route: 048
     Dates: start: 20110809, end: 20110813
  2. LIPITOR [Concomitant]
     Indication: HYPERLIPIDAEMIA
     Route: 048
     Dates: end: 20110813
  3. NAPROXEN [Concomitant]
     Indication: TUMOUR ASSOCIATED FEVER
     Route: 048
     Dates: start: 20110726, end: 20110813
  4. CODEINE PHOSPHATE HYDRATE [Concomitant]
     Route: 048
     Dates: end: 20110813
  5. ZOLPIDEM [Concomitant]
     Indication: INSOMNIA
     Route: 048
     Dates: end: 20110813
  6. MUCOSTA [Concomitant]
     Indication: PROPHYLAXIS AGAINST GASTROINTESTINAL ULCER
     Route: 048
     Dates: start: 20110726, end: 20110813
  7. URSO 250 [Concomitant]
     Indication: HEPATIC FUNCTION ABNORMAL
     Route: 048
     Dates: end: 20110813
  8. AMLODIPINE [Concomitant]
     Indication: HYPERTENSION
     Route: 048
     Dates: end: 20110813
  9. ALOSENN [Concomitant]
     Route: 048
     Dates: end: 20110813

REACTIONS (3)
  - LUNG INFECTION [None]
  - RESPIRATORY FAILURE [None]
  - INTERSTITIAL LUNG DISEASE [None]
